FAERS Safety Report 11156376 (Version 1)
Quarter: 2015Q2

REPORT INFORMATION
  Report Type: Spontaneous
  Country: JP (occurrence: JP)
  Receive Date: 20150602
  Receipt Date: 20150602
  Transmission Date: 20150821
  Serious: Yes (Other)
  Sender: FDA-Public Use
  Company Number: PHJP2015JP005989

PATIENT
  Age: 55 Year
  Sex: Female

DRUGS (1)
  1. RITALIN [Suspect]
     Active Substance: METHYLPHENIDATE HYDROCHLORIDE
     Indication: HYPERSOMNIA
     Dosage: 60 MG, QD
     Route: 048

REACTIONS (5)
  - Attention deficit/hyperactivity disorder [Unknown]
  - Concomitant disease aggravated [Unknown]
  - Amnesia [Unknown]
  - Off label use [Unknown]
  - Temporal lobe epilepsy [Unknown]
